FAERS Safety Report 8726869 (Version 2)
Quarter: 2015Q2

REPORT INFORMATION
  Report Type: Report from Study
  Country: US (occurrence: US)
  Receive Date: 20120816
  Receipt Date: 20150626
  Transmission Date: 20150821
  Serious: Yes (Other)
  Sender: FDA-Public Use
  Company Number: US-ROCHE-1100488

PATIENT
  Age: 61 Year
  Sex: Female

DRUGS (17)
  1. ECOTRIN [Concomitant]
     Active Substance: ASPIRIN
     Dosage: 5 GRAINS
     Route: 065
  2. ISORDIL [Concomitant]
     Active Substance: ISOSORBIDE DINITRATE
     Dosage: TITRADOSE
     Route: 065
  3. ISORDIL [Concomitant]
     Active Substance: ISOSORBIDE DINITRATE
     Dosage: 24 CC
     Route: 065
  4. ISORDIL [Concomitant]
     Active Substance: ISOSORBIDE DINITRATE
     Dosage: 21 CC
     Route: 065
  5. ACTIVASE [Suspect]
     Active Substance: ALTEPLASE
     Route: 065
  6. ISORDIL [Concomitant]
     Active Substance: ISOSORBIDE DINITRATE
     Route: 060
  7. ATROPINE [Concomitant]
     Active Substance: ATROPINE
  8. FERROUS SULFATE [Concomitant]
     Active Substance: FERROUS SULFATE\FERROUS SULFATE, DRIED
     Route: 042
  9. LIDOCAINE. [Concomitant]
     Active Substance: LIDOCAINE
     Dosage: 2 MG/MIN
     Route: 065
  10. ISORDIL [Concomitant]
     Active Substance: ISOSORBIDE DINITRATE
     Dosage: 50/250CC
     Route: 065
  11. ZANTAC [Concomitant]
     Active Substance: RANITIDINE HYDROCHLORIDE
  12. ACTIVASE [Suspect]
     Active Substance: ALTEPLASE
     Indication: CHEST PAIN
     Route: 065
  13. ACTIVASE [Suspect]
     Active Substance: ALTEPLASE
     Dosage: 35 U/HR
     Route: 065
  14. ACTIVASE [Suspect]
     Active Substance: ALTEPLASE
     Indication: CHRONIC OBSTRUCTIVE PULMONARY DISEASE
     Route: 040
  15. LIDOCAINE. [Concomitant]
     Active Substance: LIDOCAINE
     Route: 040
  16. ISORDIL [Concomitant]
     Active Substance: ISOSORBIDE DINITRATE
     Dosage: 27 CC
     Route: 065
  17. ISORDIL [Concomitant]
     Active Substance: ISOSORBIDE DINITRATE
     Dosage: 18 CC
     Route: 065

REACTIONS (11)
  - Malaise [Unknown]
  - Pericarditis [Unknown]
  - Myocardial necrosis marker increased [Unknown]
  - Vomiting [Unknown]
  - Electrocardiogram ST segment elevation [Unknown]
  - Left atrial dilatation [Unknown]
  - Nausea [Unknown]
  - Insomnia [Unknown]
  - Decreased activity [Unknown]
  - Pain [Unknown]
  - Chest discomfort [Unknown]
